FAERS Safety Report 4833569-3 (Version None)
Quarter: 2005Q4

REPORT INFORMATION
  Report Type: 
  Country: None (occurrence: None)
  Receive Date: 20051121
  Receipt Date: 20051111
  Transmission Date: 20060501
  Serious: Yes (Hospitalization)
  Sender: FDA-Public Use
  Company Number: US-MERCK-0511USA01998

PATIENT
  Age: 82 Year
  Sex: Female

DRUGS (1)
  1. VIOXX [Suspect]
     Indication: SPINAL DISORDER
     Route: 048
     Dates: start: 19990101, end: 20040801

REACTIONS (4)
  - CARDIAC FAILURE CONGESTIVE [None]
  - CHEST PAIN [None]
  - HEADACHE [None]
  - TRANSIENT ISCHAEMIC ATTACK [None]
